FAERS Safety Report 8379024-8 (Version None)
Quarter: 2012Q2

REPORT INFORMATION
  Report Type: 
  Country: None (occurrence: None)
  Receive Date: 20120522
  Receipt Date: 20120522
  Transmission Date: 20120825
  Serious: Yes (Hospitalization)
  Sender: FDA-Public Use
  Company Number: None

PATIENT
  Age: 71 Year
  Sex: Male
  Weight: 59.8748 kg

DRUGS (1)
  1. LISINOPRIL AND HYDROCHLOROTHIAZIDE [Suspect]
     Indication: HYPERTENSION
     Dosage: 1 TABLET BY MOUTH DAILY PO
     Route: 048
     Dates: start: 20100101, end: 20120518

REACTIONS (3)
  - DYSPHAGIA [None]
  - DRUG HYPERSENSITIVITY [None]
  - DYSPHONIA [None]
